FAERS Safety Report 11561828 (Version 2)
Quarter: 2015Q4

REPORT INFORMATION
  Report Type: Spontaneous
  Country: CN (occurrence: CN)
  Receive Date: 20150928
  Receipt Date: 20151007
  Transmission Date: 20160304
  Serious: Yes (Hospitalization, Other)
  Sender: FDA-Public Use
  Company Number: PHHY2015CN115156

PATIENT
  Age: 75 Year
  Sex: Female

DRUGS (5)
  1. WARFARIN [Interacting]
     Active Substance: WARFARIN
     Dosage: 2.25 UNK, UNK (ON EVEN-NUMBERED DAYS)
     Route: 065
  2. AMIODARONE [Concomitant]
     Active Substance: AMIODARONE
     Indication: PRODUCT USED FOR UNKNOWN INDICATION
     Dosage: 0.2 G, QD
     Route: 065
  3. WARFARIN [Suspect]
     Active Substance: WARFARIN
     Indication: PRODUCT USED FOR UNKNOWN INDICATION
     Dosage: 1.5 MG, UNK (ON ODD NUMBERED DAYS)
     Route: 065
  4. TRAMADOL. [Interacting]
     Active Substance: TRAMADOL
     Indication: OSTEOARTHRITIS
     Dosage: 200 MG, BID (FOR THREE DAYS)
     Route: 048
  5. METOPROLOL [Concomitant]
     Active Substance: METOPROLOL
     Indication: PRODUCT USED FOR UNKNOWN INDICATION
     Dosage: 71.25 MG, QD (SUSTAINED RELEASE)
     Route: 065

REACTIONS (3)
  - Haematuria [Recovering/Resolving]
  - Drug interaction [Recovering/Resolving]
  - Ecchymosis [Recovering/Resolving]
